FAERS Safety Report 6695511-2 (Version None)
Quarter: 2010Q2

REPORT INFORMATION
  Report Type: 
  Country: None (occurrence: None)
  Receive Date: 20100426
  Receipt Date: 20100415
  Transmission Date: 20101027
  Serious: Yes (Hospitalization)
  Sender: FDA-Public Use
  Company Number: DE-BIOGENIDEC-2010BI002917

PATIENT
  Age: 51 Year
  Sex: Female
  Weight: 50 kg

DRUGS (8)
  1. AVONEX [Suspect]
     Indication: RELAPSING-REMITTING MULTIPLE SCLEROSIS
     Route: 030
     Dates: start: 20071101
  2. RANIDURA [Concomitant]
     Indication: GASTRIC ULCER
     Route: 048
  3. AMANTADINE HCL [Concomitant]
     Indication: FATIGUE
     Route: 048
     Dates: start: 20090525
  4. SIMVASTATIN [Concomitant]
     Indication: HYPERLIPIDAEMIA
     Route: 048
  5. SIRDALUD [Concomitant]
     Indication: MUSCLE SPASTICITY
     Route: 048
     Dates: start: 20080101
  6. GABAPENTIN [Concomitant]
     Indication: NEURALGIA
     Route: 048
     Dates: start: 20080101
  7. L-TYROXIN [Concomitant]
     Indication: HYPOTHYROIDISM
     Route: 048
  8. PANTOPRAZOL [Concomitant]
     Indication: DRUG USE FOR UNKNOWN INDICATION
     Route: 048

REACTIONS (7)
  - ACUTE MYOCARDIAL INFARCTION [None]
  - DECREASED APPETITE [None]
  - FATIGUE [None]
  - HYPERTENSION [None]
  - MUSCLE SPASTICITY [None]
  - NEURALGIA [None]
  - THIRST DECREASED [None]
